FAERS Safety Report 14157891 (Version 2)
Quarter: 2017Q4

REPORT INFORMATION
  Report Type: Spontaneous
  Country: TR (occurrence: TR)
  Receive Date: 20171105
  Receipt Date: 20171215
  Transmission Date: 20180321
  Serious: Yes (Other)
  Sender: FDA-Public Use
  Company Number: TR-CONCORDIA PHARMACEUTICALS INC.-E2B_00008466

PATIENT
  Age: 76 Year
  Sex: Female

DRUGS (5)
  1. TRIMETHOPRIM/SULFAMETHOXAZOLE [Concomitant]
     Active Substance: SULFAMETHOXAZOLE\TRIMETHOPRIM
     Indication: PROPHYLAXIS
  2. PREDNISOLONE. [Suspect]
     Active Substance: PREDNISOLONE
     Indication: SYSTEMIC LUPUS ERYTHEMATOSUS
     Dosage: CORTICOSTEROID
  3. MYCOPHENOLATE MOFETIL. [Suspect]
     Active Substance: MYCOPHENOLATE MOFETIL
     Indication: SYSTEMIC LUPUS ERYTHEMATOSUS
  4. PREDNISOLONE. [Suspect]
     Active Substance: PREDNISOLONE
     Dosage: MAINTENANCE DOSE; CORTICOSTEROID
  5. MYCOPHENOLATE MOFETIL. [Suspect]
     Active Substance: MYCOPHENOLATE MOFETIL
     Dosage: MAINTENANCE DOSE

REACTIONS (1)
  - Kaposi^s sarcoma [Unknown]
